FAERS Safety Report 22193079 (Version 1)
Quarter: 2023Q2

REPORT INFORMATION
  Report Type: Spontaneous
  Country: ES (occurrence: ES)
  Receive Date: 20230410
  Receipt Date: 20230410
  Transmission Date: 20230722
  Serious: Yes (Other)
  Sender: FDA-Public Use
  Company Number: ES-LEO Pharma-350670

PATIENT
  Age: 71 Year
  Sex: Male

DRUGS (17)
  1. OLMESARTAN [Suspect]
     Active Substance: OLMESARTAN
     Indication: Hypertension
     Dosage: 1 TABLET DAILY, OLMESARTAN 20 MG/AMLODIPINE 5 MG TABLETS
     Route: 065
  2. INNOHEP [Suspect]
     Active Substance: TINZAPARIN SODIUM
     Indication: Pulmonary embolism
     Dosage: DOSAGE : 14,000 IU/DAY, TREATMENT
     Route: 065
     Dates: start: 20220926, end: 20221002
  3. INNOHEP [Suspect]
     Active Substance: TINZAPARIN SODIUM
     Dosage: DOSAGE : 14,000 IU/DAY, TREATMENT
     Route: 065
     Dates: start: 20220926, end: 20221002
  4. INNOHEP [Suspect]
     Active Substance: TINZAPARIN SODIUM
     Dosage: DOSAGE : 14,000 IU/DAY, TREATMENT
     Route: 065
     Dates: start: 20220926, end: 20221002
  5. INNOHEP [Suspect]
     Active Substance: TINZAPARIN SODIUM
     Dosage: DOSAGE : 10,000 IU/DAY
     Route: 065
     Dates: start: 20221004
  6. INNOHEP [Suspect]
     Active Substance: TINZAPARIN SODIUM
     Dosage: DOSAGE : 10,000 IU/DAY
     Route: 065
     Dates: start: 20221004
  7. INNOHEP [Suspect]
     Active Substance: TINZAPARIN SODIUM
     Dosage: DOSAGE : 10,000 IU/DAY
     Route: 065
     Dates: start: 20221004
  8. INNOHEP [Suspect]
     Active Substance: TINZAPARIN SODIUM
     Dosage: DOSAGE : 14,000 IU/DAY
     Route: 065
     Dates: start: 202211
  9. INNOHEP [Suspect]
     Active Substance: TINZAPARIN SODIUM
     Dosage: DOSAGE : 14,000 IU/DAY
     Route: 065
     Dates: start: 202211
  10. INNOHEP [Suspect]
     Active Substance: TINZAPARIN SODIUM
     Dosage: DOSAGE : 14,000 IU/DAY
     Route: 065
     Dates: start: 202211
  11. METHYLPREDNISOLONE [Concomitant]
     Active Substance: METHYLPREDNISOLONE
     Indication: Neutropenia
     Dosage: UNK
     Route: 048
     Dates: start: 20220926
  12. LANSOPRAZOLE [Concomitant]
     Active Substance: LANSOPRAZOLE
     Indication: Product used for unknown indication
     Dosage: DOSAGE : 15 MG DAILY
     Route: 065
  13. METOCLOPRAMIDE [Concomitant]
     Active Substance: METOCLOPRAMIDE
     Indication: Neutropenia
     Dosage: UNK
     Route: 065
     Dates: start: 20220926
  14. PITAVASTATIN [Concomitant]
     Active Substance: PITAVASTATIN
     Indication: Dyslipidaemia
     Dosage: DOSAGE : 1 MG DAILY
     Route: 065
  15. FILGRASTIM [Concomitant]
     Active Substance: FILGRASTIM
     Indication: Neutropenia
     Dosage: DOSAGE : 5 ?G/KG/DAY FOR 72 HOURS AFTER CHEMOTHERAPY
     Route: 065
     Dates: start: 20220926
  16. ASPIRIN [Concomitant]
     Active Substance: ASPIRIN
     Indication: Myocardial ischaemia
     Dosage: DOSAGE : 100MG DAILY
     Route: 065
  17. FLUOROURACIL\LEUCOVORIN CALCIUM\OXALIPLATIN [Concomitant]
     Active Substance: FLUOROURACIL\LEUCOVORIN CALCIUM\OXALIPLATIN
     Indication: Squamous cell carcinoma
     Dosage: DOSAGE : OXALIPLATIN 85MG/M2 + FOLINIC ACID 400MG/M2 EVERY 14 DAYS
     Route: 065
     Dates: start: 202207

REACTIONS (3)
  - Anaemia [Recovered/Resolved]
  - Haematemesis [Recovered/Resolved]
  - Rectal haemorrhage [Recovered/Resolved]

NARRATIVE: CASE EVENT DATE: 20221002
